FAERS Safety Report 12235254 (Version 1)
Quarter: 2016Q2

REPORT INFORMATION
  Report Type: Spontaneous
  Country: US (occurrence: US)
  Receive Date: 20160404
  Receipt Date: 20160404
  Transmission Date: 20160815
  Serious: No
  Sender: FDA-Public Use
  Company Number: US-TARO-2015TAR01008

PATIENT
  Sex: Male

DRUGS (1)
  1. FLUOROURACIL TOPICAL CREAM USP 5% [Suspect]
     Active Substance: FLUOROURACIL
     Dosage: APPLIED TO CHEEKS AND HEAD BEFORE GOING TO SLEEP
     Route: 061

REACTIONS (2)
  - Blister [Not Recovered/Not Resolved]
  - Accidental exposure to product [Unknown]
